FAERS Safety Report 7718408-5 (Version None)
Quarter: 2011Q3

REPORT INFORMATION
  Report Type: 
  Country: None (occurrence: None)
  Receive Date: 20110830
  Receipt Date: 20110825
  Transmission Date: 20111222
  Serious: No
  Sender: FDA-Public Use
  Company Number: US-PFIZER INC-2011198174

PATIENT
  Sex: Female
  Weight: 41.723 kg

DRUGS (1)
  1. PROTONIX [Suspect]
     Indication: PANCREATECTOMY
     Dosage: 40 MG, 1X/DAY
     Route: 048
     Dates: start: 20050101, end: 20110630

REACTIONS (1)
  - WEIGHT DECREASED [None]
